FAERS Safety Report 15967948 (Version 1)
Quarter: 2019Q1

REPORT INFORMATION
  Report Type: Spontaneous
  Country: US (occurrence: US)
  Receive Date: 20190215
  Receipt Date: 20190215
  Transmission Date: 20190418
  Serious: Yes (Other)
  Sender: FDA-Public Use
  Company Number: None

PATIENT
  Age: 71 Year
  Sex: Male
  Weight: 82.35 kg

DRUGS (8)
  1. PLAVIX [Concomitant]
     Active Substance: CLOPIDOGREL BISULFATE
  2. BEVESPI AEROSPHERE [Concomitant]
     Active Substance: FORMOTEROL FUMARATE\GLYCOPYRROLATE
  3. VENTOLIN HFA [Concomitant]
     Active Substance: ALBUTEROL SULFATE
  4. EMCYT [Suspect]
     Active Substance: ESTRAMUSTINE PHOSPHATE SODIUM
     Indication: PROSTATE CANCER
     Route: 048
     Dates: start: 20190121
  5. TAMSULOSIN [Concomitant]
     Active Substance: TAMSULOSIN
  6. SIMVASTATIN. [Concomitant]
     Active Substance: SIMVASTATIN
  7. RANITIDINE. [Concomitant]
     Active Substance: RANITIDINE
  8. VITAMIN C (CALCIUM ASCORBATE) [Concomitant]

REACTIONS (1)
  - Hospice care [None]
